FAERS Safety Report 7866272-6 (Version None)
Quarter: 2011Q4

REPORT INFORMATION
  Report Type: 
  Country: None (occurrence: None)
  Receive Date: 20111028
  Receipt Date: 20110523
  Transmission Date: 20120403
  Serious: No
  Sender: FDA-Public Use
  Company Number: US-GLAXOSMITHKLINE-A0928567A

PATIENT
  Sex: Female

DRUGS (15)
  1. VENTOLIN HFA [Concomitant]
  2. ALBUTEROL [Concomitant]
     Route: 055
  3. RESTASIS [Concomitant]
     Route: 047
  4. LEVAQUIN [Concomitant]
     Dates: start: 20110516
  5. SIMVASTATIN [Concomitant]
  6. LEVOTHYROXINE SODIUM [Concomitant]
  7. NYSTATIN [Concomitant]
     Indication: CANDIDIASIS
  8. ADVAIR DISKUS 100/50 [Suspect]
     Indication: PRODUCT USED FOR UNKNOWN INDICATION
     Dosage: 1PUFF TWICE PER DAY
     Route: 055
     Dates: start: 20110518
  9. CALCIUM CARBONATE [Concomitant]
     Indication: SUPPLEMENTATION THERAPY
  10. ZYRTEC [Concomitant]
  11. XANAX [Concomitant]
  12. CLONAZEPAM [Concomitant]
  13. VITAMIN D [Concomitant]
  14. ASPIRIN [Concomitant]
     Dosage: 2TAB WEEKLY
  15. PREMPRO [Concomitant]

REACTIONS (5)
  - DYSGEUSIA [None]
  - OROPHARYNGEAL PAIN [None]
  - NAUSEA [None]
  - DYSPHONIA [None]
  - APTYALISM [None]
